FAERS Safety Report 24561019 (Version 1)
Quarter: 2024Q4

REPORT INFORMATION
  Report Type: Spontaneous
  Country: GB (occurrence: GB)
  Receive Date: 20241029
  Receipt Date: 20241029
  Transmission Date: 20250114
  Serious: Yes (Hospitalization)
  Sender: MYLAN
  Company Number: GB-MYLANLABS-2024M1097019

PATIENT
  Sex: Male

DRUGS (1)
  1. TOBI PODHALER [Suspect]
     Active Substance: TOBRAMYCIN
     Indication: Cystic fibrosis
     Dosage: 112 MILLIGRAM, BID (INHALE THE CONTENTS OF 4 CAPSULES TWICE A DAY (4 CAPSULES IN THE MORNING AND)
     Route: 055

REACTIONS (2)
  - Nephrolithiasis [Unknown]
  - Off label use [Unknown]
